FAERS Safety Report 8785068 (Version 3)
Quarter: 2012Q4

REPORT INFORMATION
  Report Type: 
  Country: US (occurrence: US)
  Receive Date: 20120914
  Receipt Date: 20121022
  Transmission Date: 20130627
  Serious: Yes (Hospitalization, Disabling, Other)
  Sender: FDA-Public Use
  Company Number: US-009507513-1103USA00842

PATIENT

DRUGS (13)
  1. FOSAMAX [Suspect]
     Indication: OSTEOPOROSIS
     Dosage: 70 mg, QW
     Route: 048
     Dates: start: 200010
  2. FOSAMAX [Suspect]
     Indication: OSTEOPENIA
     Dosage: 10 mg, UNK
     Route: 048
     Dates: start: 20010223
  3. FOSAMAX [Suspect]
     Indication: OSTEOPOROSIS
     Dosage: 70 mg, UNK
     Route: 048
     Dates: start: 200802, end: 20091201
  4. FOSAMAX [Suspect]
     Indication: OSTEOPENIA
  5. FOSAMAX [Suspect]
     Route: 048
  6. ZOVIRAX [Concomitant]
     Indication: HERPES VIRUS INFECTION
     Dosage: 400 mg, tid
     Route: 048
     Dates: start: 2000, end: 200708
  7. BENTYL [Concomitant]
     Indication: IRRITABLE BOWEL SYNDROME
     Dosage: 10 mg, tid
     Route: 048
  8. FLONASE [Concomitant]
     Indication: RHINITIS ALLERGIC
     Dosage: 50 ?g, UNK
  9. PAXIL [Concomitant]
     Indication: DEPRESSION
     Dosage: 30 mg, qd
     Route: 048
  10. SENNA [Concomitant]
     Indication: IRRITABLE BOWEL SYNDROME
  11. CALCIUM (UNSPECIFIED) [Concomitant]
     Indication: OSTEOPENIA
     Dosage: calc 1600 mg w/ 400 IU vit D
  12. CALCIUM (UNSPECIFIED) [Concomitant]
     Indication: OSTEOPOROSIS
  13. VITAMIN D (UNSPECIFIED) [Concomitant]
     Dosage: 1000 UNK, UNK

REACTIONS (80)
  - Femur fracture [Not Recovered/Not Resolved]
  - Suicidal ideation [Unknown]
  - Keratoacanthoma [Unknown]
  - Low turnover osteopathy [Unknown]
  - Patella fracture [Unknown]
  - Fall [Unknown]
  - Foot fracture [Recovered/Resolved]
  - Foot fracture [Unknown]
  - Stress fracture [Unknown]
  - Stress fracture [Unknown]
  - Costochondritis [Unknown]
  - Urinary tract infection [Unknown]
  - Contusion [Unknown]
  - Costochondritis [Unknown]
  - Herpes zoster [Unknown]
  - Cellulitis [Unknown]
  - Adverse event [Not Recovered/Not Resolved]
  - Vaginal disorder [Unknown]
  - Foot fracture [Unknown]
  - Scoliosis [Unknown]
  - Migraine [Not Recovered/Not Resolved]
  - Otitis media [Unknown]
  - Sinusitis [Unknown]
  - Lactose intolerance [Unknown]
  - Epistaxis [Unknown]
  - Osteoarthritis [Not Recovered/Not Resolved]
  - Foot deformity [Unknown]
  - Anxiety [Unknown]
  - Melanocytic naevus [Unknown]
  - Pyogenic granuloma [Unknown]
  - Avulsion fracture [Unknown]
  - Fall [Unknown]
  - Laceration [Unknown]
  - Excoriation [Unknown]
  - Breast calcifications [Unknown]
  - Breast mass [Unknown]
  - Spinal pain [Unknown]
  - Intervertebral disc degeneration [Unknown]
  - Bone density decreased [Unknown]
  - Parotitis [Unknown]
  - Diverticulum [Unknown]
  - Foot fracture [Unknown]
  - Heart sounds abnormal [Unknown]
  - Blood pressure increased [Unknown]
  - Endometrial hyperplasia [Unknown]
  - Nasal polyps [Unknown]
  - Heart sounds abnormal [Unknown]
  - Vitamin D deficiency [Unknown]
  - Foot fracture [Unknown]
  - Vaginitis bacterial [Unknown]
  - Foot fracture [Unknown]
  - Skin lesion [Unknown]
  - Postmenopausal haemorrhage [Unknown]
  - Uterine polyp [Unknown]
  - Cervical polyp [Unknown]
  - Impaired healing [Unknown]
  - Vaginal lesion [Unknown]
  - Spinal osteoarthritis [Unknown]
  - Seborrhoeic keratosis [Unknown]
  - Abscess limb [Unknown]
  - Cellulitis [Unknown]
  - Violence-related symptom [Unknown]
  - Muscular weakness [Unknown]
  - Oedema [Unknown]
  - Hypersensitivity [Unknown]
  - Bladder spasm [Unknown]
  - Polydipsia [Unknown]
  - Polyuria [Unknown]
  - Pollakiuria [Unknown]
  - Glucose tolerance impaired [Unknown]
  - Aortic dilatation [Unknown]
  - Polyp [Unknown]
  - Myalgia [Unknown]
  - Musculoskeletal chest pain [Unknown]
  - Drug ineffective [Unknown]
  - Pain in extremity [Unknown]
  - Pain in extremity [Unknown]
  - Drug ineffective [Unknown]
  - Rash [Unknown]
  - Constipation [Unknown]
